FAERS Safety Report 15610808 (Version 1)
Quarter: 2018Q4

REPORT INFORMATION
  Report Type: Spontaneous
  Country: US (occurrence: US)
  Receive Date: 20181113
  Receipt Date: 20181113
  Transmission Date: 20190205
  Serious: No
  Sender: FDA-Public Use
  Company Number: US-ROCHE-2063446

PATIENT
  Sex: Male

DRUGS (1)
  1. LUCENTIS [Suspect]
     Active Substance: RANIBIZUMAB
     Indication: PRODUCT USED FOR UNKNOWN INDICATION
     Dosage: PFS: ONGOING: UNKNOWN
     Route: 065
     Dates: start: 20180119

REACTIONS (2)
  - Circumstance or information capable of leading to medication error [Unknown]
  - No adverse event [Unknown]

NARRATIVE: CASE EVENT DATE: 20180119
